FAERS Safety Report 5698435-2 (Version None)
Quarter: 2008Q2

REPORT INFORMATION
  Report Type: 
  Country: None (occurrence: None)
  Receive Date: 20080408
  Receipt Date: 20060605
  Transmission Date: 20081010
  Serious: No
  Sender: FDA-Public Use
  Company Number: US-BAYER-US-2006-014928

PATIENT
  Age: 41 Year
  Sex: Female
  Weight: 69 kg

DRUGS (4)
  1. CLIMARA [Suspect]
     Indication: MENOPAUSAL SYMPTOMS
     Route: 062
     Dates: start: 20051201, end: 20060101
  2. CLIMARA [Suspect]
     Route: 062
     Dates: start: 20060101
  3. PROVERA [Concomitant]
  4. NORTRIPTYLINE HCL [Concomitant]

REACTIONS (3)
  - ABDOMINAL DISTENSION [None]
  - ALOPECIA [None]
  - GENITAL HAEMORRHAGE [None]
